FAERS Safety Report 15832543 (Version 1)
Quarter: 2019Q1

REPORT INFORMATION
  Report Type: Spontaneous
  Country: ES (occurrence: ES)
  Receive Date: 20190116
  Receipt Date: 20190116
  Transmission Date: 20190417
  Serious: Yes (Other)
  Sender: FDA-Public Use
  Company Number: ES-BAYER-2019-006732

PATIENT
  Age: 67 Year
  Sex: Male

DRUGS (6)
  1. XOFIGO [Suspect]
     Active Substance: RADIUM RA-223 DICHLORIDE
     Indication: HORMONE-REFRACTORY PROSTATE CANCER
     Dosage: UNK
     Dates: start: 20150714, end: 20150714
  2. XOFIGO [Suspect]
     Active Substance: RADIUM RA-223 DICHLORIDE
     Indication: HORMONE-REFRACTORY PROSTATE CANCER
     Dosage: UNK
     Dates: start: 20150917, end: 20150917
  3. XOFIGO [Suspect]
     Active Substance: RADIUM RA-223 DICHLORIDE
     Indication: HORMONE-REFRACTORY PROSTATE CANCER
     Dosage: UNK
     Dates: start: 20150811, end: 20150811
  4. XOFIGO [Suspect]
     Active Substance: RADIUM RA-223 DICHLORIDE
     Indication: HORMONE-REFRACTORY PROSTATE CANCER
     Dosage: UNK
     Dates: start: 20151119, end: 20151119
  5. XOFIGO [Suspect]
     Active Substance: RADIUM RA-223 DICHLORIDE
     Indication: HORMONE-REFRACTORY PROSTATE CANCER
     Dosage: UNK
     Dates: start: 20151230, end: 20151230
  6. XOFIGO [Suspect]
     Active Substance: RADIUM RA-223 DICHLORIDE
     Indication: HORMONE-REFRACTORY PROSTATE CANCER
     Dosage: UNK
     Dates: start: 20151022, end: 20151022

REACTIONS (10)
  - Pre-existing condition improved [None]
  - Neutrophil count increased [None]
  - Musculoskeletal pain [None]
  - Diarrhoea [None]
  - Prostatic specific antigen increased [None]
  - Platelet count increased [None]
  - Blood alkaline phosphatase increased [None]
  - Haematotoxicity [None]
  - Bone lesion [None]
  - Metastases to bone [None]

NARRATIVE: CASE EVENT DATE: 2015
